FAERS Safety Report 10364391 (Version 1)
Quarter: 2014Q3

REPORT INFORMATION
  Report Type: Spontaneous
  Country: GB (occurrence: None)
  Receive Date: 20140804
  Receipt Date: 20140804
  Transmission Date: 20150326
  Serious: Yes (Disabling)
  Sender: FDA-Public Use
  Company Number: None

PATIENT
  Age: 32 Year
  Sex: Male
  Weight: 70 kg

DRUGS (1)
  1. CITALOPRAM HYDROBROMIDE. [Suspect]
     Active Substance: CITALOPRAM HYDROBROMIDE
     Indication: DEPRESSION
     Dosage: 1 20MG PILL PER DAY, ONCE DAILY, TAKEN BY MOUTH
     Route: 048
     Dates: start: 20140501, end: 20140715

REACTIONS (2)
  - Loss of libido [None]
  - Sexual dysfunction [None]

NARRATIVE: CASE EVENT DATE: 20140801
